FAERS Safety Report 16784710 (Version 1)
Quarter: 2019Q3

REPORT INFORMATION
  Report Type: Spontaneous
  Country: US (occurrence: US)
  Receive Date: 20190909
  Receipt Date: 20190909
  Transmission Date: 20191005
  Serious: Yes (Hospitalization)
  Sender: FDA-Public Use
  Company Number: PHEH2019US036503

PATIENT
  Age: 40 Year
  Sex: Female

DRUGS (1)
  1. PIQRAY [Suspect]
     Active Substance: ALPELISIB
     Indication: METASTASES TO LIVER
     Dosage: 200 MG, QD
     Route: 048

REACTIONS (3)
  - Blood sodium decreased [Recovering/Resolving]
  - Hyperglycaemia [Recovering/Resolving]
  - Ascites [Recovering/Resolving]
